FAERS Safety Report 12833908 (Version 3)
Quarter: 2016Q4

REPORT INFORMATION
  Report Type: Spontaneous
  Country: JP (occurrence: JP)
  Receive Date: 20161010
  Receipt Date: 20161128
  Transmission Date: 20170207
  Serious: Yes (Hospitalization, Other)
  Sender: FDA-Public Use
  Company Number: JP-JNJFOC-20161007119

PATIENT
  Age: 74 Year
  Sex: Male
  Weight: 83 kg

DRUGS (13)
  1. CANAGLU [Suspect]
     Active Substance: CANAGLIFLOZIN
     Indication: TYPE 2 DIABETES MELLITUS
     Route: 048
     Dates: start: 20160825, end: 20160927
  2. BAYASPIRIN [Concomitant]
     Active Substance: ASPIRIN
     Dosage: STARTED BEFORE 2009
     Route: 048
     Dates: end: 20090927
  3. FLUVASTATIN SODIUM. [Concomitant]
     Active Substance: FLUVASTATIN SODIUM
     Dosage: STARTED BEFORE 2009
     Route: 048
     Dates: end: 20160927
  4. PARIET [Concomitant]
     Active Substance: RABEPRAZOLE SODIUM
     Dosage: STARTED BEFORE 2009
     Route: 048
  5. EPADEL [Concomitant]
     Active Substance: ICOSAPENT
     Dosage: STARTED BEFORE 2009
     Route: 048
     Dates: end: 20160927
  6. FLUVASTATIN SODIUM. [Concomitant]
     Active Substance: FLUVASTATIN SODIUM
     Dosage: STARTED BEFORE 2009
     Route: 048
     Dates: start: 20160928
  7. TRAZENTA [Concomitant]
     Active Substance: LINAGLIPTIN
     Route: 048
     Dates: start: 20141001, end: 20160927
  8. NORVASC [Concomitant]
     Active Substance: AMLODIPINE BESYLATE
     Dosage: STARTED BEFORE 2009
     Route: 048
     Dates: end: 20160927
  9. MAINTATE [Concomitant]
     Active Substance: BISOPROLOL FUMARATE
     Dosage: STARTED BEFORE 2009
     Route: 048
     Dates: end: 20160927
  10. AMARYL [Concomitant]
     Active Substance: GLIMEPIRIDE
     Indication: TYPE 2 DIABETES MELLITUS
     Dosage: STARTED BEFORE 2009
     Route: 048
     Dates: end: 20160927
  11. MICARDIS [Concomitant]
     Active Substance: TELMISARTAN
     Dosage: STARTED BEFORE 2009
     Route: 048
     Dates: start: 20161021
  12. MICARDIS [Concomitant]
     Active Substance: TELMISARTAN
     Dosage: STARTED BEFORE 2009
     Route: 048
     Dates: end: 20160927
  13. SENNOSIDE [Concomitant]
     Active Substance: SENNOSIDES
     Dosage: STARTED BEFORE 2009
     Route: 048

REACTIONS (1)
  - Cerebral infarction [Recovering/Resolving]

NARRATIVE: CASE EVENT DATE: 20160927
